FAERS Safety Report 9826042 (Version 1)
Quarter: 2013Q4

REPORT INFORMATION
  Report Type: Spontaneous
  Country: GB (occurrence: None)
  Receive Date: 20131107
  Receipt Date: 20131107
  Transmission Date: 20140711
  Serious: Yes (Disabling)
  Sender: FDA-Public Use
  Company Number: 2013GMK006751

PATIENT
  Age: 76 Year
  Sex: Male
  Weight: 71.5 kg

DRUGS (4)
  1. PRAMIPEXOLE [Suspect]
     Dosage: 2 DF, TID, ORAL
     Route: 048
     Dates: start: 20130702, end: 20130712
  2. PRAMIPEXOLE [Suspect]
     Dosage: 2 DF, TID, ORAL
     Route: 048
     Dates: start: 20130622, end: 20130702
  3. MADOPAR (BENSERAZIDE HYDROCHLORIDE, LEVODOPA) [Concomitant]
  4. RAMIPRIL (RAMIPRIL) [Concomitant]

REACTIONS (8)
  - Coordination abnormal [None]
  - Gait disturbance [None]
  - Dizziness [None]
  - Feeling abnormal [None]
  - Listless [None]
  - Fatigue [None]
  - Drug ineffective [None]
  - Product substitution issue [None]
